FAERS Safety Report 14009473 (Version 1)
Quarter: 2017Q3

REPORT INFORMATION
  Report Type: Spontaneous
  Country: US (occurrence: US)
  Receive Date: 20170925
  Receipt Date: 20170925
  Transmission Date: 20171128
  Serious: Yes (Death)
  Sender: FDA-Public Use
  Company Number: US-BAYER-2017-180741

PATIENT
  Age: 3 Year
  Sex: Female

DRUGS (1)
  1. BAYER ASPIRIN [Suspect]
     Active Substance: ASPIRIN

REACTIONS (3)
  - Labelled drug-disease interaction medication error [Fatal]
  - Contraindicated product administered [Fatal]
  - Reye^s syndrome [Fatal]

NARRATIVE: CASE EVENT DATE: 197311
